FAERS Safety Report 8246590-2 (Version None)
Quarter: 2012Q1

REPORT INFORMATION
  Report Type: 
  Country: None (occurrence: None)
  Receive Date: 20120330
  Receipt Date: 20120322
  Transmission Date: 20120608
  Serious: Yes (Hospitalization, Other)
  Sender: FDA-Public Use
  Company Number: US-BAYER-2011-032034

PATIENT
  Age: 32 Year
  Sex: Female
  Weight: 66.213 kg

DRUGS (7)
  1. YASMIN [Suspect]
     Indication: ACNE
     Dosage: UNK
     Route: 048
     Dates: start: 20070518, end: 20080501
  2. CLARITIN [Concomitant]
     Indication: MULTIPLE ALLERGIES
     Dosage: 10 MG, UNK
     Route: 048
     Dates: start: 20090324
  3. DIFLUCAN [Concomitant]
     Dosage: 150 MG, UNK
     Route: 048
  4. YAZ [Suspect]
     Dosage: UNK
     Route: 048
     Dates: start: 20080602, end: 20090325
  5. YAZ [Suspect]
     Indication: ACNE
     Dosage: UNK
     Route: 048
     Dates: start: 20060717, end: 20070501
  6. FLEXERIL [Concomitant]
     Indication: MUSCLE RELAXANT THERAPY
     Dosage: 10 MG, UNK
     Route: 048
     Dates: start: 20090324, end: 20090325
  7. IBUPROFEN [Concomitant]
     Indication: PAIN
     Dosage: 800 MG, UNK
     Route: 048
     Dates: start: 20090323, end: 20090327

REACTIONS (21)
  - ANGINA PECTORIS [None]
  - TOTAL LUNG CAPACITY DECREASED [None]
  - PULMONARY INFARCTION [None]
  - ATRIAL FIBRILLATION [None]
  - HAEMATEMESIS [None]
  - EXERCISE TOLERANCE DECREASED [None]
  - PALPITATIONS [None]
  - INJURY [None]
  - ARRHYTHMIA [None]
  - PLEURAL EFFUSION [None]
  - PAIN [None]
  - EMOTIONAL DISTRESS [None]
  - ANXIETY [None]
  - GENERAL PHYSICAL HEALTH DETERIORATION [None]
  - MUSCULOSKELETAL PAIN [None]
  - CHEST PAIN [None]
  - TACHYCARDIA [None]
  - DYSPNOEA [None]
  - BRADYCARDIA [None]
  - PULMONARY EMBOLISM [None]
  - HEART RATE IRREGULAR [None]
